FAERS Safety Report 14538093 (Version 1)
Quarter: 2018Q1

REPORT INFORMATION
  Report Type: Other
  Country: US (occurrence: US)
  Receive Date: 20180216
  Receipt Date: 20180216
  Transmission Date: 20180509
  Serious: Yes (Death)
  Sender: FDA-Public Use
  Company Number: US-ORCHID HEALTHCARE-2042086

PATIENT
  Age: 51 Year
  Sex: Male

DRUGS (1)
  1. AMLODIPINE BESYLATE. [Suspect]
     Active Substance: AMLODIPINE BESYLATE
     Route: 048

REACTIONS (11)
  - Hypotension [Unknown]
  - Left ventricular dysfunction [Unknown]
  - Completed suicide [Fatal]
  - Acidosis [Unknown]
  - Cardiac failure [Unknown]
  - Intentional self-injury [Unknown]
  - Pulmonary oedema [Unknown]
  - Multiple organ dysfunction syndrome [Unknown]
  - Peripheral ischaemia [Unknown]
  - Intentional overdose [Fatal]
  - Hypokinesia [Unknown]
